FAERS Safety Report 6411360-4 (Version None)
Quarter: 2009Q4

REPORT INFORMATION
  Report Type: 
  Country: None (occurrence: None)
  Receive Date: 20091023
  Receipt Date: 20090921
  Transmission Date: 20100525
  Serious: No
  Sender: FDA-Public Use
  Company Number: US-BAYER-200935271NA

PATIENT
  Age: 54 Year
  Sex: Male

DRUGS (1)
  1. BETASERON [Suspect]
     Dosage: ACCIDENTALLY STUCK WITH BETASERON NEEDLE
     Dates: start: 20090920

REACTIONS (3)
  - INJURY [None]
  - NASOPHARYNGITIS [None]
  - PYREXIA [None]
